FAERS Safety Report 25205637 (Version 6)
Quarter: 2025Q4

REPORT INFORMATION
  Report Type: Spontaneous
  Country: CA (occurrence: CA)
  Receive Date: 20250417
  Receipt Date: 20251008
  Transmission Date: 20260118
  Serious: Yes (Other)
  Sender: CELLTRION
  Company Number: CA-CELLTRION INC.-2024CA028222

PATIENT

DRUGS (3)
  1. STEQEYMA [Suspect]
     Active Substance: USTEKINUMAB-STBA
     Indication: Crohn^s disease
     Dosage: 90 MG Q 4 WEEKS, 90 MILLIGRAM 1 EVERY 4 WEEKS (TREATMENT NOT YET STARTED)
     Route: 058
     Dates: start: 20241210
  2. STEQEYMA [Suspect]
     Active Substance: USTEKINUMAB-STBA
     Dosage: 90 MILLIGRAM PER MILLILITRE, Q4WEEKS (1 EVERY 4 WEEKS)
     Route: 058
     Dates: start: 20250414
  3. STEQEYMA [Suspect]
     Active Substance: USTEKINUMAB-STBA
     Dosage: 90 MG EVERY 4 WEEKS
     Route: 058

REACTIONS (4)
  - Gallbladder operation [Unknown]
  - Off label use [Unknown]
  - Intentional dose omission [Unknown]
  - Psoriasis [Unknown]

NARRATIVE: CASE EVENT DATE: 20241210
